FAERS Safety Report 6716772-7 (Version None)
Quarter: 2010Q2

REPORT INFORMATION
  Report Type: 
  Country: None (occurrence: None)
  Receive Date: 20100510
  Receipt Date: 20100426
  Transmission Date: 20101027
  Serious: Yes (Hospitalization, Other)
  Sender: FDA-Public Use
  Company Number: AU-RANBAXY-2010RR-33544

PATIENT
  Age: 49 Year
  Sex: Female

DRUGS (2)
  1. MELOXICAM [Suspect]
     Dosage: 15 MG, UNK
  2. LITHIUM CARBONATE [Suspect]

REACTIONS (14)
  - ATAXIA [None]
  - DIARRHOEA [None]
  - DRUG INTERACTION [None]
  - HYPERREFLEXIA [None]
  - HYPERTENSION [None]
  - HYPERTONIA [None]
  - LETHARGY [None]
  - MUSCLE CONTRACTIONS INVOLUNTARY [None]
  - NAUSEA [None]
  - PYREXIA [None]
  - SALIVARY HYPERSECRETION [None]
  - THERAPEUTIC AGENT TOXICITY [None]
  - TREMOR [None]
  - VOMITING [None]
